FAERS Safety Report 14824806 (Version 12)
Quarter: 2018Q3

REPORT INFORMATION
  Report Type: Spontaneous
  Country: DE (occurrence: DE)
  Receive Date: 20180430
  Receipt Date: 20180926
  Transmission Date: 20181010
  Serious: Yes (Other)
  Sender: FDA-Public Use
  Company Number: DE-MYLANLABS-2018M1027304

PATIENT
  Age: 56 Year
  Sex: Female
  Weight: 59 kg

DRUGS (15)
  1. PROGESTAN [Suspect]
     Active Substance: PROGESTERONE
     Dosage: 1 CAPSULE DAILY (UNKNOWN, 1 IN 2 D)
     Route: 048
     Dates: start: 201711, end: 20180119
  2. PROGESTAN [Suspect]
     Active Substance: PROGESTERONE
     Dosage: 1 CAPSULE EVERY SECOND EVENING. (1 DOSAGE FORMS, 1 IN 2 D)
     Route: 048
     Dates: start: 201701, end: 201705
  3. PROGESTAN [Suspect]
     Active Substance: PROGESTERONE
     Dosage: 1 CAPSULE DAILY (FROM JAN?MAY 2017: CAPSULE EVERY SECOND DAY STOPPED FRM MAY?NOV 2017
     Route: 048
     Dates: start: 2012, end: 20180119
  4. GYNOKADIN                          /00045401/ [Suspect]
     Active Substance: ESTRADIOL
     Dosage: 2 PUFFS DAILY (FROM JAN MAY 2017: 1 PUFF DAILY; STOPPED FROM MAY NOV 2017)
     Route: 062
     Dates: start: 2012, end: 20180119
  5. L?THYROXIN                         /00068001/ [Concomitant]
     Active Substance: LEVOTHYROXINE
     Indication: HYPOTHYROIDISM
     Dosage: 50 ?G, QD
  6. GYNOKADIN                          /00045401/ [Suspect]
     Active Substance: ESTRADIOL
     Indication: HORMONE REPLACEMENT THERAPY
     Dosage: 2 PUFFS DAILY. 2 PUFFS DAILY (FROM JAN?MAY 2017: 1 PUFF DAILY; STOPPED FROM MAY?NOV2017)
     Route: 062
     Dates: start: 2012, end: 201701
  7. GYNOKADIN                          /00045401/ [Suspect]
     Active Substance: ESTRADIOL
     Indication: MENOPAUSAL SYMPTOMS
     Dosage: 2 DF, QD
     Route: 062
     Dates: start: 201701, end: 201705
  8. GYNOKADIN                          /00045401/ [Suspect]
     Active Substance: ESTRADIOL
     Dosage: 2 PUFFS DAILY
     Route: 062
     Dates: start: 201711, end: 20180119
  9. ESTRADIOL. [Suspect]
     Active Substance: ESTRADIOL
     Dosage: 1 PUFF DAILY (1 DOSAGE FORMS, 1 IN 1D) (1 DOSAGE FORMS,1 IN 1 D)
     Route: 062
     Dates: start: 2012
  10. PROGESTAN [Suspect]
     Active Substance: PROGESTERONE
     Indication: PREVENTION OF ENDOMETRIAL HYPERPLASIA
     Dosage: 1 CAPSULE DAILY (1 DOSAGE FORMS,1 IN 1 D)1 CAPSULE DAILY(FROM JAN MAY 2017:CAPSULE EVERY SECOND DAY;
     Route: 048
     Dates: start: 2012, end: 201701
  11. ESTRADIOL. [Suspect]
     Active Substance: ESTRADIOL
     Indication: MENOPAUSAL SYMPTOMS
     Dosage: 1 PUFF DAILY
     Route: 062
     Dates: start: 201701, end: 201705
  12. RAMIPRIL. [Concomitant]
     Active Substance: RAMIPRIL
     Indication: HYPERTENSION
     Dosage: UNK
  13. PASCOFLAIR [Concomitant]
     Indication: MENOPAUSAL DISORDER
     Dosage: UNK
  14. LERCANIDIPINE [Suspect]
     Active Substance: LERCANIDIPINE
     Indication: HYPERTENSION
     Dosage: UNK
  15. ESTRADIOL. [Suspect]
     Active Substance: ESTRADIOL
     Indication: HORMONE REPLACEMENT THERAPY
     Dosage: 2 PUFFS DAILY ( UNKNOWN, 1 IN 1D)
     Route: 062
     Dates: start: 201711, end: 20180119

REACTIONS (11)
  - Blood lactate dehydrogenase increased [Not Recovered/Not Resolved]
  - Asthenia [Recovered/Resolved]
  - Abdominal lymphadenopathy [Not Recovered/Not Resolved]
  - Blood alkaline phosphatase increased [Not Recovered/Not Resolved]
  - Ultrasound liver abnormal [Not Recovered/Not Resolved]
  - Gamma-glutamyltransferase increased [Not Recovered/Not Resolved]
  - Transaminases increased [Not Recovered/Not Resolved]
  - Thrombocytopenia [Not Recovered/Not Resolved]
  - Nausea [Recovering/Resolving]
  - Fatigue [Recovering/Resolving]
  - Off label use [Not Recovered/Not Resolved]

NARRATIVE: CASE EVENT DATE: 2017
